FAERS Safety Report 15907769 (Version 11)
Quarter: 2021Q2

REPORT INFORMATION
  Report Type: Report from Study
  Country: DO (occurrence: DO)
  Receive Date: 20190204
  Receipt Date: 20210412
  Transmission Date: 20210716
  Serious: Yes (Hospitalization, Other)
  Sender: FDA-Public Use
  Company Number: PHHY2017DO121586

PATIENT
  Age: 60 Year
  Sex: Female

DRUGS (2)
  1. GILENYA [Suspect]
     Active Substance: FINGOLIMOD HYDROCHLORIDE
     Indication: RELAPSING-REMITTING MULTIPLE SCLEROSIS
     Dosage: 0.5 MG, QD
     Route: 048
     Dates: start: 20170504
  2. TEGRETOL [Suspect]
     Active Substance: CARBAMAZEPINE
     Indication: TRIGEMINAL NEURALGIA
     Dosage: 200 MG
     Route: 065

REACTIONS (26)
  - Vision blurred [Recovering/Resolving]
  - Glaucoma [Unknown]
  - Malaise [Recovering/Resolving]
  - Trigeminal neuralgia [Unknown]
  - Pyrexia [Unknown]
  - Hypoacusis [Unknown]
  - Fatigue [Recovering/Resolving]
  - Syncope [Unknown]
  - General physical health deterioration [Recovering/Resolving]
  - Visual impairment [Recovering/Resolving]
  - Pelvic organ injury [Unknown]
  - Fall [Recovering/Resolving]
  - Multiple sclerosis relapse [Recovering/Resolving]
  - Mobility decreased [Recovering/Resolving]
  - Gait inability [Recovering/Resolving]
  - Temperature intolerance [Unknown]
  - Upper limb fracture [Unknown]
  - Peroneal nerve palsy [Unknown]
  - Memory impairment [Unknown]
  - Feeling abnormal [Unknown]
  - Tooth disorder [Unknown]
  - Eye pain [Recovering/Resolving]
  - Depressed mood [Unknown]
  - Anxiety [Unknown]
  - Off label use [Unknown]
  - Urinary tract infection [Unknown]

NARRATIVE: CASE EVENT DATE: 201812
